FAERS Safety Report 24124124 (Version 3)
Quarter: 2024Q3

REPORT INFORMATION
  Report Type: Spontaneous
  Country: US (occurrence: US)
  Receive Date: 20240723
  Receipt Date: 20240826
  Transmission Date: 20241016
  Serious: No
  Sender: ROCHE
  Company Number: US-ROCHE-10000026176

PATIENT
  Age: 22 Year
  Sex: Female

DRUGS (2)
  1. XOLAIR PFS [Suspect]
     Active Substance: OMALIZUMAB
     Indication: Mast cell activation syndrome
     Route: 058
     Dates: start: 202308
  2. XOLAIR PFS [Suspect]
     Active Substance: OMALIZUMAB
     Indication: Ectopic pregnancy

REACTIONS (5)
  - Off label use [Unknown]
  - Haemorrhage [Unknown]
  - Device malfunction [Unknown]
  - Product complaint [Unknown]
  - Device failure [Unknown]

NARRATIVE: CASE EVENT DATE: 20240629
